FAERS Safety Report 13141669 (Version 3)
Quarter: 2017Q1

REPORT INFORMATION
  Report Type: Spontaneous
  Country: US (occurrence: US)
  Receive Date: 20170123
  Receipt Date: 20170202
  Transmission Date: 20170428
  Serious: Yes (Death, Hospitalization)
  Sender: FDA-Public Use
  Company Number: US-UNITED THERAPEUTICS-UNT-2017-000380

PATIENT
  Age: 69 Year
  Sex: Male
  Weight: 60.77 kg

DRUGS (3)
  1. REMODULIN [Suspect]
     Active Substance: TREPROSTINIL
     Indication: PULMONARY ARTERIAL HYPERTENSION
     Dosage: 0.056 ?G/KG, CONTINUING
     Route: 058
     Dates: start: 20160825
  2. UPTRAVI [Concomitant]
     Active Substance: SELEXIPAG
     Indication: PRODUCT USED FOR UNKNOWN INDICATION
  3. LETAIRIS [Concomitant]
     Active Substance: AMBRISENTAN
     Indication: PRODUCT USED FOR UNKNOWN INDICATION

REACTIONS (4)
  - Pneumonia [Unknown]
  - Incorrect dose administered [Unknown]
  - Anxiety [Unknown]
  - General physical health deterioration [Fatal]

NARRATIVE: CASE EVENT DATE: 20170109
